FAERS Safety Report 13214494 (Version 4)
Quarter: 2017Q2

REPORT INFORMATION
  Report Type: Report from Study
  Country: US (occurrence: US)
  Receive Date: 20170210
  Receipt Date: 20170615
  Transmission Date: 20170830
  Serious: Yes (Death, Hospitalization)
  Sender: FDA-Public Use
  Company Number: US-ACTELION-A-US2017-149790

PATIENT
  Age: 62 Year
  Sex: Male
  Weight: 86.62 kg

DRUGS (2)
  1. TRACLEER [Suspect]
     Active Substance: BOSENTAN
     Indication: PULMONARY ARTERIAL HYPERTENSION
     Dosage: 125 MG, BID
     Route: 048
  2. TRACLEER [Suspect]
     Active Substance: BOSENTAN
     Dosage: 62.5 MG, BID
     Route: 048

REACTIONS (5)
  - Death [Fatal]
  - Gangrene [Unknown]
  - Poor peripheral circulation [Unknown]
  - Toe amputation [Unknown]
  - Leg amputation [Unknown]

NARRATIVE: CASE EVENT DATE: 20170603
